APPROVED DRUG PRODUCT: EPHEDRINE SULFATE
Active Ingredient: EPHEDRINE SULFATE
Strength: 50MG/ML (50MG/ML)
Dosage Form/Route: SOLUTION;INTRAVENOUS
Application: A219050 | Product #001 | TE Code: AP
Applicant: CAPLIN STERILES LTD
Approved: Jul 18, 2024 | RLD: No | RS: No | Type: RX